FAERS Safety Report 8176706-8 (Version None)
Quarter: 2012Q1

REPORT INFORMATION
  Report Type: 
  Country: None (occurrence: None)
  Receive Date: 20120301
  Receipt Date: 20120217
  Transmission Date: 20120608
  Serious: Yes (Death)
  Sender: FDA-Public Use
  Company Number: AU-ELI_LILLY_AND_COMPANY-AU201202004041

PATIENT
  Sex: Female

DRUGS (4)
  1. VENTOLIN                                /SCH/ [Concomitant]
  2. XANAX [Concomitant]
     Dosage: 2 MG, BID
  3. MOBIC [Concomitant]
     Dosage: 15 MG, QD
  4. CYMBALTA [Suspect]
     Indication: MAJOR DEPRESSION
     Dosage: 60 MG, QD
     Route: 048

REACTIONS (1)
  - DEATH [None]
